FAERS Safety Report 21991820 (Version 1)
Quarter: 2023Q1

REPORT INFORMATION
  Report Type: Spontaneous
  Country: GB (occurrence: GB)
  Receive Date: 20230214
  Receipt Date: 20230214
  Transmission Date: 20230417
  Serious: Yes (Life-Threatening, Other)
  Sender: FDA-Public Use
  Company Number: GB-009507513-2302GBR004508

PATIENT
  Age: 77 Year
  Sex: Male

DRUGS (1)
  1. PEMBROLIZUMAB [Suspect]
     Active Substance: PEMBROLIZUMAB
     Indication: Malignant melanoma stage II
     Dosage: UNK
     Dates: start: 202004, end: 202004

REACTIONS (3)
  - Immune-mediated myocarditis [Recovered/Resolved]
  - Immune-mediated myositis [Recovered/Resolved]
  - Immune-mediated myasthenia gravis [Recovered/Resolved]

NARRATIVE: CASE EVENT DATE: 20200101
